FAERS Safety Report 9198961 (Version 2)
Quarter: 2013Q2

REPORT INFORMATION
  Report Type: Spontaneous
  Country: CA (occurrence: CA)
  Receive Date: 20130329
  Receipt Date: 20130513
  Transmission Date: 20140414
  Serious: Yes (Hospitalization)
  Sender: FDA-Public Use
  Company Number: CA-BRISTOL-MYERS SQUIBB COMPANY-18713917

PATIENT
  Age: 15 Year
  Sex: Male

DRUGS (2)
  1. ABILIFY TABS [Suspect]
     Dosage: UNK DATE:INCREASED TO 7.5MG
  2. PAROXETINE [Suspect]

REACTIONS (1)
  - Mania [Unknown]
